FAERS Safety Report 8446131-0 (Version None)
Quarter: 2012Q2

REPORT INFORMATION
  Report Type: 
  Country: None (occurrence: None)
  Receive Date: 20120618
  Receipt Date: 20120612
  Transmission Date: 20120825
  Serious: Yes (Hospitalization, Other)
  Sender: FDA-Public Use
  Company Number: CA-CELGENEUS-028-50794-12042075

PATIENT
  Age: 38 Year
  Sex: Female

DRUGS (12)
  1. VIDAZA [Suspect]
     Route: 041
     Dates: start: 20111205
  2. VIDAZA [Suspect]
     Route: 041
     Dates: start: 20120227
  3. VIDAZA [Suspect]
     Route: 041
     Dates: start: 20111010
  4. VIDAZA [Suspect]
     Route: 058
     Dates: start: 20110912
  5. VIDAZA [Suspect]
     Route: 041
     Dates: start: 20120102
  6. VIDAZA [Suspect]
     Route: 041
     Dates: start: 20120130
  7. VIDAZA [Suspect]
     Route: 041
     Dates: start: 20120326
  8. VIDAZA [Suspect]
     Route: 041
     Dates: start: 20111107
  9. VIDAZA [Suspect]
     Route: 041
     Dates: start: 20120423
  10. RED BLOOD CELLS [Concomitant]
     Route: 041
  11. VIDAZA [Suspect]
     Route: 041
     Dates: start: 20120521
  12. VORINOSTAT [Concomitant]
     Dosage: 200 MILLIGRAM
     Route: 065
     Dates: start: 20120130

REACTIONS (10)
  - PURPURA [None]
  - MUCOSAL HAEMORRHAGE [None]
  - INJECTION SITE NODULE [None]
  - COMPARTMENT SYNDROME [None]
  - INJECTION SITE MOVEMENT IMPAIRMENT [None]
  - INCORRECT ROUTE OF DRUG ADMINISTRATION [None]
  - FEBRILE NEUTROPENIA [None]
  - PETECHIAE [None]
  - EPISTAXIS [None]
  - PANCYTOPENIA [None]
